FAERS Safety Report 23422213 (Version 4)
Quarter: 2024Q3

REPORT INFORMATION
  Report Type: Spontaneous
  Country: US (occurrence: US)
  Receive Date: 20240119
  Receipt Date: 20240812
  Transmission Date: 20241016
  Serious: Yes (Other)
  Sender: NOVARTIS
  Company Number: US-002147023-NVSC2024US010393

PATIENT
  Age: 68 Year
  Sex: Female

DRUGS (1)
  1. KESIMPTA [Suspect]
     Active Substance: OFATUMUMAB
     Indication: Product used for unknown indication
     Dosage: 20 MG
     Route: 058
     Dates: start: 20240103

REACTIONS (7)
  - Headache [Recovered/Resolved]
  - Influenza like illness [Recovered/Resolved]
  - Multiple sclerosis [Recovered/Resolved]
  - Urticaria [Recovered/Resolved]
  - Nasal polyps [Unknown]
  - Arthralgia [Recovered/Resolved]
  - Pollakiuria [Recovered/Resolved]

NARRATIVE: CASE EVENT DATE: 20240103
